FAERS Safety Report 8963038 (Version 6)
Quarter: 2013Q2

REPORT INFORMATION
  Report Type: Spontaneous
  Country: US (occurrence: US)
  Receive Date: 20121213
  Receipt Date: 20130522
  Transmission Date: 20140414
  Serious: No
  Sender: FDA-Public Use
  Company Number: US-009507513-1212USA004861

PATIENT
  Age: 63 Year
  Sex: Male

DRUGS (3)
  1. PEGINTRON [Suspect]
     Indication: HEPATITIS C
     Dosage: REDIPEN
     Route: 058
     Dates: start: 20121203, end: 20130512
  2. REBETOL [Suspect]
     Indication: HEPATITIS C
     Dosage: 1200 MG, QD
     Route: 048
     Dates: start: 20121203, end: 20130519
  3. REBETOL [Suspect]
     Dosage: 800 MG, QD
     Route: 048
     Dates: start: 201305

REACTIONS (21)
  - Dry eye [Unknown]
  - Haematochezia [Unknown]
  - Tremor [Unknown]
  - Hyperhidrosis [Unknown]
  - Anaemia [Unknown]
  - Anaemia [Unknown]
  - Anaemia [Unknown]
  - Dry mouth [Unknown]
  - Chills [Unknown]
  - Fatigue [Unknown]
  - Injection site reaction [Unknown]
  - Malaise [Unknown]
  - Nausea [Unknown]
  - Haemoglobin decreased [Unknown]
  - Fatigue [Unknown]
  - Influenza like illness [Unknown]
  - Haemoglobin decreased [Unknown]
  - Fatigue [Unknown]
  - Haemoglobin decreased [Unknown]
  - Arthralgia [Unknown]
  - Rash [Unknown]
